FAERS Safety Report 5323329-1 (Version None)
Quarter: 2007Q1

REPORT INFORMATION
  Report Type: 
  Country: None (occurrence: None)
  Receive Date: 20070223
  Receipt Date: 20061128
  Transmission Date: 20070707
  Serious: Yes (Disabling)
  Sender: FDA-Public Use
  Company Number: WAES 0611USA07344

PATIENT
  Age: 60 Year
  Sex: Male

DRUGS (4)
  1. ZOCOR [Suspect]
     Dosage: PO
     Route: 048
  2. ZETIA [Suspect]
     Dosage: 10 MG/DAILY/PO
     Route: 048
  3. VERELAN [Concomitant]
  4. [THERAPY UNSPECIFIED] [Concomitant]

REACTIONS (2)
  - DEPRESSION [None]
  - THROMBOCYTOPENIA [None]
